FAERS Safety Report 10462008 (Version 1)
Quarter: 2014Q3

REPORT INFORMATION
  Report Type: Spontaneous
  Country: GB (occurrence: GB)
  Receive Date: 20140918
  Receipt Date: 20140918
  Transmission Date: 20150326
  Serious: Yes (Other)
  Sender: FDA-Public Use
  Company Number: GB-WATSON-2014-20009

PATIENT
  Age: 81 Year
  Sex: Female

DRUGS (1)
  1. GALANTAMINE (UNKNOWN) [Suspect]
     Active Substance: GALANTAMINE
     Indication: DEMENTIA
     Dosage: 24 MG, UNKNOWN
     Route: 048

REACTIONS (2)
  - Arrhythmia [Recovered/Resolved]
  - Syncope [Recovered/Resolved]
